FAERS Safety Report 10560049 (Version 1)
Quarter: 2014Q4

REPORT INFORMATION
  Report Type: Spontaneous
  Country: US (occurrence: None)
  Receive Date: 20141030
  Receipt Date: 20141030
  Transmission Date: 20150529
  Serious: Yes (Death, Life-Threatening, Hospitalization)
  Sender: FDA-Public Use
  Company Number: 2590139

PATIENT
  Age: 56 Year
  Sex: Male

DRUGS (7)
  1. DOCETAXEL. [Suspect]
     Active Substance: DOCETAXEL
     Indication: SOFT TISSUE SARCOMA
     Dosage: CYCLICAL
     Route: 042
     Dates: start: 20140423, end: 20140423
  2. LORAZEPAM. [Suspect]
     Active Substance: LORAZEPAM
     Indication: ANXIETY
     Route: 048
     Dates: start: 20140416, end: 20140428
  3. DOCETAXEL. [Suspect]
     Active Substance: DOCETAXEL
     Indication: SARCOMA METASTATIC
     Dosage: CYCLICAL
     Route: 042
     Dates: start: 20140423, end: 20140423
  4. PLACEBO [Suspect]
     Active Substance: UNSPECIFIED INGREDIENT
     Indication: SOFT TISSUE SARCOMA
     Dosage: CYCLICAL
     Route: 042
     Dates: start: 20140416, end: 20140423
  5. GEMCITABINE [Suspect]
     Active Substance: GEMCITABINE\GEMCITABINE HYDROCHLORIDE
     Indication: SOFT TISSUE SARCOMA
     Dosage: CYCLICAL
     Route: 042
     Dates: start: 20140416, end: 20140423
  6. GEMCITABINE [Suspect]
     Active Substance: GEMCITABINE\GEMCITABINE HYDROCHLORIDE
     Indication: SARCOMA METASTATIC
     Dosage: CYCLICAL
     Route: 042
     Dates: start: 20140416, end: 20140423
  7. PLACEBO [Suspect]
     Active Substance: UNSPECIFIED INGREDIENT
     Indication: SARCOMA METASTATIC
     Dosage: CYCLICAL
     Route: 042
     Dates: start: 20140416, end: 20140423

REACTIONS (21)
  - Confusional state [None]
  - Vena cava thrombosis [None]
  - Hallucination [None]
  - Colitis [None]
  - Abdominal distension [None]
  - Diarrhoea [None]
  - Thrombocytopenia [None]
  - Hyperventilation [None]
  - Overdose [None]
  - Pleural effusion [None]
  - Abdominal pain [None]
  - Anuria [None]
  - Portal vein thrombosis [None]
  - Neutropenia [None]
  - Panic reaction [None]
  - Constipation [None]
  - Mental status changes [None]
  - Transaminases increased [None]
  - Renal disorder [None]
  - Ascites [None]
  - Condition aggravated [None]

NARRATIVE: CASE EVENT DATE: 20140428
